FAERS Safety Report 8907169 (Version 1)
Quarter: 2012Q4

REPORT INFORMATION
  Report Type: 
  Country: US (occurrence: US)
  Receive Date: 20121114
  Receipt Date: 20121114
  Transmission Date: 20130627
  Serious: No
  Sender: FDA-Public Use
  Company Number: US-009507513-1207USA010708

PATIENT
  Age: 61 None
  Sex: Female
  Weight: 60.77 kg

DRUGS (2)
  1. PEG-INTRON [Suspect]
     Indication: HEPATITIS C
     Dosage: UNK
     Route: 058
     Dates: start: 20120721
  2. RIBAVIRIN [Suspect]
     Indication: HEPATITIS C
     Dosage: UNK
     Route: 048
     Dates: start: 20120721

REACTIONS (20)
  - Injection site erythema [Unknown]
  - Wrong technique in drug usage process [Unknown]
  - Muscle spasms [Unknown]
  - Weight decreased [Unknown]
  - Influenza like illness [Unknown]
  - Myalgia [Unknown]
  - Fatigue [Unknown]
  - White blood cell count decreased [Recovered/Resolved]
  - Decreased appetite [Unknown]
  - Insomnia [Unknown]
  - Depression [Unknown]
  - Fatigue [Unknown]
  - Poor quality sleep [Unknown]
  - Myalgia [Unknown]
  - Headache [Unknown]
  - Dry skin [Unknown]
  - Pruritus [Unknown]
  - Hair texture abnormal [Unknown]
  - Lethargy [Unknown]
  - Nausea [Unknown]
